FAERS Safety Report 5205881-X (Version None)
Quarter: 2007Q1

REPORT INFORMATION
  Report Type: 
  Country: None (occurrence: None)
  Receive Date: 20070111
  Receipt Date: 20070108
  Transmission Date: 20070707
  Serious: Yes (Other)
  Sender: FDA-Public Use
  Company Number: 2007UW00373

PATIENT
  Age: 30 Year
  Sex: Female
  Weight: 81.6 kg

DRUGS (4)
  1. SEROQUEL [Suspect]
     Indication: BIPOLAR DISORDER
     Route: 048
  2. SYNTHROID [Concomitant]
  3. LITHIUM CARBONATE [Concomitant]
  4. KLONOPIN [Concomitant]

REACTIONS (2)
  - AMENORRHOEA [None]
  - GALACTORRHOEA [None]
